FAERS Safety Report 23799139 (Version 1)
Quarter: 2024Q2

REPORT INFORMATION
  Report Type: Spontaneous
  Country: CH (occurrence: CH)
  Receive Date: 20240430
  Receipt Date: 20240430
  Transmission Date: 20240715
  Serious: Yes (Other)
  Sender: FDA-Public Use
  Company Number: CH-GLANDPHARMA-CH-2024GLNLIT00073

PATIENT
  Weight: 3.1 kg

DRUGS (2)
  1. DEXMEDETOMIDINE HYDROCHLORIDE [Suspect]
     Active Substance: DEXMEDETOMIDINE HYDROCHLORIDE
     Indication: Product use in unapproved indication
     Dosage: 4 MCG
     Route: 065
  2. ROPIVACAINE HYDROCHLORIDE [Suspect]
     Active Substance: ROPIVACAINE HYDROCHLORIDE
     Indication: Product use in unapproved indication
     Route: 065

REACTIONS (4)
  - Vasoconstriction [Unknown]
  - Skin lesion [Unknown]
  - Hyperaemia [Unknown]
  - Product use in unapproved indication [Unknown]
